FAERS Safety Report 24443902 (Version 2)
Quarter: 2024Q4

REPORT INFORMATION
  Report Type: Report from Study
  Country: US (occurrence: US)
  Receive Date: 20241016
  Receipt Date: 20241017
  Transmission Date: 20250115
  Serious: No
  Sender: ROCHE
  Company Number: US-ROCHE-2436673

PATIENT
  Age: 65 Year
  Sex: Male
  Weight: 88.0 kg

DRUGS (6)
  1. RITUXAN [Suspect]
     Active Substance: RITUXIMAB
     Indication: Immune system disorder
     Dosage: 2 DOSES ON DAY 1 - 2 DOSES ON DAY 15
     Route: 042
     Dates: start: 20191004
  2. RITUXAN [Suspect]
     Active Substance: RITUXIMAB
     Indication: Benign salivary gland neoplasm
  3. RITUXAN [Suspect]
     Active Substance: RITUXIMAB
     Indication: Lymphadenopathy
  4. RITUXAN [Suspect]
     Active Substance: RITUXIMAB
     Indication: Asthma
  5. OMEPRAZOLE [Concomitant]
     Active Substance: OMEPRAZOLE
     Route: 065
  6. PREDNISONE [Concomitant]
     Active Substance: PREDNISONE
     Route: 065
     Dates: start: 20180816

REACTIONS (2)
  - Off label use [Unknown]
  - No adverse event [Unknown]

NARRATIVE: CASE EVENT DATE: 20191004
